FAERS Safety Report 4527121-7 (Version None)
Quarter: 2004Q4

REPORT INFORMATION
  Report Type: 
  Country: None (occurrence: None)
  Receive Date: 20041201
  Receipt Date: 20040910
  Transmission Date: 20050328
  Serious: Yes (Other)
  Sender: FDA-Public Use
  Company Number: US091273

PATIENT
  Age: 51 Year
  Sex: Male

DRUGS (4)
  1. ENBREL [Suspect]
     Indication: RHEUMATOID ARTHRITIS
     Dosage: 25 MG, 2 IN 1 WEEKS, SC
     Route: 058
     Dates: start: 20031001, end: 20040510
  2. NIMESULIDE (NIMESULIDE) [Concomitant]
  3. OMEPRAZOLE [Concomitant]
  4. RISEDRONATE SODIUM (RISEDRONATE) [Concomitant]

REACTIONS (1)
  - DEEP VEIN THROMBOSIS [None]
